FAERS Safety Report 14627899 (Version 4)
Quarter: 2018Q2

REPORT INFORMATION
  Report Type: Report from Study
  Country: GB (occurrence: GB)
  Receive Date: 20180312
  Receipt Date: 20180417
  Transmission Date: 20180711
  Serious: Yes (Other)
  Sender: FDA-Public Use
  Company Number: GB-JNJFOC-20180311972

PATIENT
  Age: 68 Year
  Sex: Female

DRUGS (1)
  1. STELARA [Suspect]
     Active Substance: USTEKINUMAB
     Indication: PSORIASIS
     Route: 058
     Dates: start: 20150813

REACTIONS (6)
  - Product storage error [Unknown]
  - Lower respiratory tract infection [Recovered/Resolved]
  - Inappropriate schedule of drug administration [Unknown]
  - Mouth ulceration [Unknown]
  - Rash [Unknown]
  - Arthritis [Unknown]

NARRATIVE: CASE EVENT DATE: 2016
